FAERS Safety Report 12916390 (Version 1)
Quarter: 2016Q4

REPORT INFORMATION
  Report Type: Spontaneous
  Country: US (occurrence: US)
  Receive Date: 20161103
  Receipt Date: 20161103
  Transmission Date: 20170207
  Serious: No
  Sender: FDA-Public Use
  Company Number: None

PATIENT
  Age: 32 Year
  Sex: Female
  Weight: 106.8 kg

DRUGS (9)
  1. B2-400 [Concomitant]
  2. CO-Q10 [Concomitant]
  3. FLONASE [Concomitant]
     Active Substance: FLUTICASONE PROPIONATE
  4. IBUPROFEN. [Concomitant]
     Active Substance: IBUPROFEN
  5. CALCIUM 500+D [Concomitant]
     Active Substance: CALCIUM\VITAMIN D
  6. FER-IRON [Concomitant]
     Active Substance: FERROUS SULFATE
  7. PHENTERMINE. [Suspect]
     Active Substance: PHENTERMINE
     Route: 048
     Dates: start: 20161011, end: 20161101
  8. BUPROPION. [Concomitant]
     Active Substance: BUPROPION
  9. MAGNESIUM OXIDE. [Concomitant]
     Active Substance: MAGNESIUM OXIDE

REACTIONS (10)
  - Anxiety [None]
  - Mood swings [None]
  - Abdominal pain [None]
  - Panic attack [None]
  - Disorientation [None]
  - Confusional state [None]
  - Chest pain [None]
  - Nausea [None]
  - Feeling abnormal [None]
  - Hallucination [None]

NARRATIVE: CASE EVENT DATE: 20161101
